FAERS Safety Report 7996802-5 (Version None)
Quarter: 2011Q4

REPORT INFORMATION
  Report Type: 
  Country: None (occurrence: None)
  Receive Date: 20111221
  Receipt Date: 20111209
  Transmission Date: 20120403
  Serious: Yes (Hospitalization, Other)
  Sender: FDA-Public Use
  Company Number: US-JNJFOC-20111204650

PATIENT
  Sex: Male
  Weight: 75.3 kg

DRUGS (13)
  1. REMICADE [Suspect]
     Route: 042
     Dates: start: 20111121
  2. SULFASALAZINE [Concomitant]
     Indication: ARTHRITIS
     Dosage: 500MG/TABLET/500MG THREE TABS TWICE DAILY
     Route: 048
     Dates: start: 20100101
  3. OMEPRAZOLE [Concomitant]
     Route: 048
  4. METFORMIN HCL [Concomitant]
     Indication: DIABETES MELLITUS
     Route: 048
  5. VITAMIN D [Concomitant]
     Indication: VITAMIN SUPPLEMENTATION
     Route: 048
     Dates: start: 20100101
  6. METOPROLOL TARTRATE [Concomitant]
     Indication: CARDIAC DISORDER
     Dosage: 25MG/TABLET/1/2 PER DAY
     Dates: start: 20100101
  7. FOLIC ACID [Concomitant]
     Route: 048
  8. HUMALOG [Concomitant]
     Route: 058
  9. REMICADE [Suspect]
     Indication: PSORIATIC ARTHROPATHY
     Route: 042
     Dates: start: 20111205, end: 20111205
  10. TRAMADOL HCL [Concomitant]
     Indication: PAIN
     Dosage: 37.5MG/325MG/TABLET/37.5/325MG/ TWO EVERY SIX HOURS AS NEEDED
     Dates: start: 20110101
  11. ALBUTEROL [Concomitant]
     Route: 055
  12. METHOTREXATE [Concomitant]
     Indication: ARTHRITIS
     Dosage: 2.5 MG/TABLETS/2.5MG/ SEVEN TABS WEEKLY
     Route: 048
     Dates: start: 20100101
  13. ASPIRIN [Concomitant]
     Indication: ANTICOAGULANT THERAPY
     Route: 048
     Dates: end: 20111201

REACTIONS (16)
  - CHEST PAIN [None]
  - URTICARIA [None]
  - VENTRICULAR EXTRASYSTOLES [None]
  - DIZZINESS [None]
  - INFUSION RELATED REACTION [None]
  - INCREASED UPPER AIRWAY SECRETION [None]
  - DYSPNOEA [None]
  - WHEEZING [None]
  - PULMONARY GRANULOMA [None]
  - BLOOD POTASSIUM DECREASED [None]
  - PRURITUS [None]
  - HYPERSENSITIVITY [None]
  - FEELING HOT [None]
  - MYOCARDIAL INFARCTION [None]
  - MITRAL VALVE INCOMPETENCE [None]
  - CARDIAC VALVE DISEASE [None]
